FAERS Safety Report 15268259 (Version 1)
Quarter: 2018Q3

REPORT INFORMATION
  Report Type: Spontaneous
  Country: US (occurrence: US)
  Receive Date: 20180725
  Receipt Date: 20180725
  Transmission Date: 20181010
  Serious: Yes (Life-Threatening, Hospitalization, Disabling, Other)
  Sender: FDA-Public Use
  Company Number: None

PATIENT
  Age: 57 Year
  Sex: Female
  Weight: 85.5 kg

DRUGS (8)
  1. VALSARTAN HTZ [Concomitant]
  2. CLONOPIN [Concomitant]
     Active Substance: CLONAZEPAM
  3. WELLBUTRIN [Concomitant]
     Active Substance: BUPROPION HYDROCHLORIDE
  4. VITIMAN D [Concomitant]
  5. LEVOTHROXINE [Concomitant]
     Active Substance: LEVOTHYROXINE
  6. DAILY VITIMINS [Concomitant]
  7. CELEXA [Concomitant]
     Active Substance: CITALOPRAM HYDROBROMIDE
  8. VALSARTAN AND HYDROCHLOROTHIAZIDE [Suspect]
     Active Substance: HYDROCHLOROTHIAZIDE\VALSARTAN
     Indication: HYPERTENSION
     Dosage: ?          QUANTITY:90 TABLET(S);?
     Route: 048

REACTIONS (2)
  - Product use issue [None]
  - Endometrial cancer [None]

NARRATIVE: CASE EVENT DATE: 20180711
